FAERS Safety Report 9259474 (Version 1)
Quarter: 2013Q2

REPORT INFORMATION
  Report Type: Spontaneous
  Country: US (occurrence: US)
  Receive Date: 20130428
  Receipt Date: 20130428
  Transmission Date: 20140414
  Serious: Yes (Death, Other)
  Sender: FDA-Public Use
  Company Number: US-TEVA-400521USA

PATIENT
  Age: 58 Year
  Sex: Female

DRUGS (4)
  1. CARBOPLATIN [Suspect]
     Indication: OVARIAN CANCER RECURRENT
  2. DOXORUBICIN LIPOSOMAL [Suspect]
     Indication: OVARIAN CANCER RECURRENT
  3. GEMCITABINE [Suspect]
     Indication: OVARIAN CANCER RECURRENT
  4. PACLITAXEL [Concomitant]
     Indication: OVARIAN CANCER RECURRENT

REACTIONS (4)
  - Renal failure chronic [Unknown]
  - Haemolysis [Unknown]
  - Thrombocytopenia [Unknown]
  - Malignant neoplasm progression [Fatal]
